FAERS Safety Report 5866340 (Version 2)
Quarter: 2014Q4

REPORT INFORMATION
  Report Type: Spontaneous
  Country: US (occurrence: None)
  Receive Date: 20050812
  Receipt Date: 20141003
  Transmission Date: 20150529
  Serious: Yes (Hospitalization)
  Sender: FDA-Public Use
  Company Number: 410696

PATIENT
  Age: 43 Year
  Sex: Female

DRUGS (2)
  1. RIBAVIRIN (RIBAVIRIN) [Suspect]
     Active Substance: RIBAVIRIN
     Indication: HEPATITIS C
     Dates: start: 200112, end: 200212
  2. PEGYLATED INTERFERON ALPHA NOS [Suspect]
     Active Substance: PEGINTERFERON ALFA-2A OR PEGINTERFERON ALFA-2B
     Indication: HEPATITIS C
     Dates: start: 200112, end: 200212

REACTIONS (1)
  - Immune thrombocytopenic purpura [None]

NARRATIVE: CASE EVENT DATE: 200212
